FAERS Safety Report 6303551-8 (Version None)
Quarter: 2009Q3

REPORT INFORMATION
  Report Type: 
  Country: None (occurrence: None)
  Receive Date: 20090810
  Receipt Date: 20090804
  Transmission Date: 20100115
  Serious: No
  Sender: FDA-Public Use
  Company Number: US-B.I. PHARMACEUTICALS,INC./RIDGEFIELD-2009-BP-09197BP

PATIENT
  Sex: Female

DRUGS (1)
  1. MICARDIS [Suspect]
     Route: 048

REACTIONS (3)
  - FEELING ABNORMAL [None]
  - FLUSHING [None]
  - OEDEMA PERIPHERAL [None]
